FAERS Safety Report 8799354 (Version 1)
Quarter: 2012Q4

REPORT INFORMATION
  Report Type: Report from Study
  Country: KR (occurrence: KR)
  Receive Date: 20120919
  Receipt Date: 20120919
  Transmission Date: 20130627
  Serious: Yes (Death)
  Sender: FDA-Public Use
  Company Number: KR-ASTELLAS-2012US007904

PATIENT
  Age: 66 Year
  Sex: Male
  Weight: 61 kg

DRUGS (7)
  1. ERLOTINIB TABLET [Suspect]
     Indication: LUNG NEOPLASM MALIGNANT
     Dosage: 150 mg, UID/QD
     Route: 048
     Dates: start: 20120712, end: 20120813
  2. ERLOTINIB TABLET [Suspect]
     Dosage: 100 mg, UID/QD
     Route: 048
     Dates: start: 20120814
  3. CAROL-F [Concomitant]
     Indication: FEELING HOT
     Dosage: UNK
     Route: 048
     Dates: start: 20120315
  4. ERDOSTEINE [Concomitant]
     Indication: PRODUCTIVE COUGH
     Dosage: 900 mg, Unknown/D
     Route: 048
     Dates: start: 20120517, end: 20120901
  5. ENSURE                             /07421001/ [Concomitant]
     Indication: MEDICAL DIET
     Dosage: 750 ml, Unknown/D
     Route: 048
     Dates: start: 20120813, end: 20120901
  6. ARESTAL                            /00384303/ [Concomitant]
     Indication: DIARRHOEA
     Dosage: 3 mg, Unknown/D
     Route: 048
     Dates: end: 20120901
  7. HYCODONE [Concomitant]
     Indication: MUSCULOSKELETAL PAIN
     Dosage: 5 mg, prn
     Route: 048
     Dates: start: 20120712, end: 20120901

REACTIONS (1)
  - Death [Fatal]
